FAERS Safety Report 4491889-9 (Version None)
Quarter: 2004Q4

REPORT INFORMATION
  Report Type: 
  Country: None (occurrence: None)
  Receive Date: 20041029
  Receipt Date: 20041029
  Transmission Date: 20050328
  Serious: Yes (Hospitalization)
  Sender: FDA-Public Use
  Company Number: None

PATIENT
  Sex: Male
  Weight: 76.2 kg

DRUGS (10)
  1. CISPLATIN [Suspect]
     Indication: NASOPHARYNGEAL CANCER
     Dosage: 100MG/M2 DAY 1, 22, 43 INTRAVENOUS
     Route: 042
     Dates: start: 20040914, end: 20041018
  2. AMBIEN [Concomitant]
  3. COMPAZINE [Concomitant]
  4. ZOFRAN [Concomitant]
  5. MARINOL [Concomitant]
  6. LACTULOSE [Concomitant]
  7. DURAGESIC [Concomitant]
  8. OXYCONTIN [Concomitant]
  9. NEXIUM [Concomitant]
  10. SENOKOT [Concomitant]

REACTIONS (3)
  - DEHYDRATION [None]
  - NAUSEA [None]
  - VOMITING [None]
